FAERS Safety Report 6912449-3 (Version None)
Quarter: 2010Q3

REPORT INFORMATION
  Report Type: 
  Country: None (occurrence: None)
  Receive Date: 20100806
  Receipt Date: 20080617
  Transmission Date: 20110219
  Serious: No
  Sender: FDA-Public Use
  Company Number: US-PFIZER INC-2008051790

PATIENT
  Sex: Male
  Weight: 64.5 kg

DRUGS (3)
  1. DILANTIN [Suspect]
     Dates: start: 19750101
  2. VITAMIN TAB [Concomitant]
  3. ZOLPIDEM [Concomitant]

REACTIONS (3)
  - ATAXIA [None]
  - DIZZINESS [None]
  - NERVOUSNESS [None]
